FAERS Safety Report 7705959-2 (Version None)
Quarter: 2011Q3

REPORT INFORMATION
  Report Type: 
  Country: None (occurrence: None)
  Receive Date: 20110824
  Receipt Date: 20110815
  Transmission Date: 20111222
  Serious: Yes (Disabling, Other)
  Sender: FDA-Public Use
  Company Number: PHEH2007US15534

PATIENT
  Sex: Female

DRUGS (1)
  1. ZOMETA [Suspect]

REACTIONS (24)
  - NEOPLASM MALIGNANT [None]
  - OSTEOARTHRITIS [None]
  - MULTIPLE MYELOMA [None]
  - RENAL FAILURE ACUTE [None]
  - PYREXIA [None]
  - RECTAL TENESMUS [None]
  - SQUAMOUS CELL CARCINOMA [None]
  - SPINAL OSTEOARTHRITIS [None]
  - ANXIETY [None]
  - SEPSIS [None]
  - PLASMACYTOSIS [None]
  - ARTHRALGIA [None]
  - BACK PAIN [None]
  - DEFORMITY [None]
  - DIVERTICULUM [None]
  - CHONDROMALACIA [None]
  - PYELONEPHRITIS [None]
  - PLEURAL EFFUSION [None]
  - PAIN [None]
  - AGRANULOCYTOSIS [None]
  - LEUKOPENIA [None]
  - URINARY INCONTINENCE [None]
  - OSTEONECROSIS OF JAW [None]
  - ANAEMIA [None]
